FAERS Safety Report 13055154 (Version 1)
Quarter: 2016Q4

REPORT INFORMATION
  Report Type: Spontaneous
  Country: US (occurrence: US)
  Receive Date: 20161222
  Receipt Date: 20161222
  Transmission Date: 20170207
  Serious: No
  Sender: FDA-Public Use
  Company Number: US-PFIZER INC-2016591409

PATIENT
  Age: 63 Year
  Sex: Female
  Weight: 70 kg

DRUGS (2)
  1. DOFETILIDE. [Suspect]
     Active Substance: DOFETILIDE
     Indication: ATRIAL FIBRILLATION
     Dosage: 125 MG, 2X/DAY
     Dates: start: 20151124
  2. ELIQUIS [Concomitant]
     Active Substance: APIXABAN
     Indication: ANTICOAGULANT THERAPY
     Dosage: 5 MG, 2X/DAY

REACTIONS (2)
  - Drug dispensing error [Unknown]
  - Tooth infection [Recovering/Resolving]

NARRATIVE: CASE EVENT DATE: 201611
